FAERS Safety Report 17903337 (Version 1)
Quarter: 2020Q2

REPORT INFORMATION
  Report Type: Spontaneous
  Country: DK (occurrence: DK)
  Receive Date: 20200616
  Receipt Date: 20200616
  Transmission Date: 20200714
  Serious: Yes (Other)
  Sender: FDA-Public Use
  Company Number: NVSC2020DK165014

PATIENT
  Sex: Male

DRUGS (6)
  1. CARBOPLATIN. [Suspect]
     Active Substance: CARBOPLATIN
     Dosage: UNK
     Route: 065
     Dates: start: 201705, end: 201810
  2. VINBLASTINE [Suspect]
     Active Substance: VINBLASTINE
     Indication: ASTROCYTOMA, LOW GRADE
     Dosage: UNK
     Route: 065
     Dates: start: 201702, end: 201705
  3. VINCRISTINE [Suspect]
     Active Substance: VINCRISTINE
     Dosage: UNK
     Route: 065
     Dates: start: 201705, end: 201810
  4. NILOTINIB [Suspect]
     Active Substance: NILOTINIB
     Indication: ASTROCYTOMA, LOW GRADE
     Dosage: UNK
     Route: 065
     Dates: start: 201702, end: 201705
  5. CARBOPLATIN. [Suspect]
     Active Substance: CARBOPLATIN
     Indication: ASTROCYTOMA, LOW GRADE
     Dosage: UNK
     Route: 065
     Dates: start: 201411, end: 201606
  6. VINCRISTINE [Suspect]
     Active Substance: VINCRISTINE
     Indication: ASTROCYTOMA, LOW GRADE
     Dosage: UNK
     Route: 065
     Dates: start: 201411, end: 201606

REACTIONS (8)
  - Mastication disorder [Unknown]
  - Dizziness [Unknown]
  - Asthenia [Unknown]
  - Cranial nerve disorder [Unknown]
  - Malignant neoplasm progression [Unknown]
  - Dysphagia [Unknown]
  - Astrocytoma, low grade [Unknown]
  - Product use in unapproved indication [Unknown]
